FAERS Safety Report 5553316-X (Version None)
Quarter: 2007Q4

REPORT INFORMATION
  Report Type: 
  Country: None (occurrence: None)
  Receive Date: 20071212
  Receipt Date: 20070712
  Transmission Date: 20080405
  Serious: No
  Sender: FDA-Public Use
  Company Number: US-AMGEN-KDL228895

PATIENT
  Sex: Female

DRUGS (14)
  1. ENBREL [Suspect]
     Indication: RHEUMATOID ARTHRITIS
     Route: 058
     Dates: start: 20060901
  2. ARANESP [Concomitant]
  3. FENTANYL [Concomitant]
  4. DETROL [Concomitant]
  5. FOLIC ACID [Concomitant]
  6. PRILOSEC [Concomitant]
  7. NEURONTIN [Concomitant]
  8. SYNTHROID [Concomitant]
  9. SODIUM BICARBONATE [Concomitant]
  10. LEUCOCIANIDOL [Concomitant]
  11. UNSPECIFIED MEDICATION [Concomitant]
  12. VITAMIN D [Concomitant]
  13. TYLENOL (CAPLET) [Concomitant]
  14. BENADRYL [Concomitant]

REACTIONS (5)
  - CONDUCTIVE DEAFNESS [None]
  - EUSTACHIAN TUBE DYSFUNCTION [None]
  - MIDDLE EAR EFFUSION [None]
  - OTITIS MEDIA [None]
  - RHINITIS ALLERGIC [None]
